FAERS Safety Report 6940126-1 (Version None)
Quarter: 2010Q3

REPORT INFORMATION
  Report Type: 
  Country: None (occurrence: None)
  Receive Date: 20100820
  Receipt Date: 20100806
  Transmission Date: 20110219
  Serious: Yes (Disabling, Other)
  Sender: FDA-Public Use
  Company Number: 2010MA001517

PATIENT
  Age: 84 Year
  Sex: Male

DRUGS (14)
  1. GABAPENTIN [Suspect]
     Indication: NEUROPATHY PERIPHERAL
     Dosage: 300 MG; QD; PO
     Route: 048
     Dates: start: 20100622, end: 20100622
  2. TRAMADOL HCL [Concomitant]
  3. ATORVASTATIN CALCIUM [Concomitant]
  4. ARANESP [Concomitant]
  5. SENNA [Concomitant]
  6. ASPIRIN [Concomitant]
  7. XALATAN [Concomitant]
  8. CAPSAICIN [Concomitant]
  9. RAMIPRIL [Concomitant]
  10. OMEPRAZOLE [Concomitant]
  11. SEVELAMER [Concomitant]
  12. ONE-ALPHA ( ONE-ALPHA) [Concomitant]
  13. CHLORPHENAMINE [Concomitant]
  14. SOLARAZE [Concomitant]

REACTIONS (4)
  - ARTHRALGIA [None]
  - MUSCULAR WEAKNESS [None]
  - PAIN IN EXTREMITY [None]
  - WHEELCHAIR USER [None]
